FAERS Safety Report 5745024-7 (Version None)
Quarter: 2008Q2

REPORT INFORMATION
  Report Type: 
  Country: None (occurrence: None)
  Receive Date: 20080521
  Receipt Date: 20080513
  Transmission Date: 20081010
  Serious: Yes (Other)
  Sender: FDA-Public Use
  Company Number: PHHY2008JP08018

PATIENT
  Age: 80 Year
  Sex: Female

DRUGS (1)
  1. VOLTAREN [Suspect]
     Indication: THORACIC VERTEBRAL FRACTURE
     Route: 054
     Dates: start: 20080425, end: 20080513

REACTIONS (2)
  - BLOOD PRESSURE INCREASED [None]
  - HERPES VIRUS INFECTION [None]
